FAERS Safety Report 17391512 (Version 1)
Quarter: 2020Q1

REPORT INFORMATION
  Report Type: Spontaneous
  Country: FR (occurrence: FR)
  Receive Date: 20200207
  Receipt Date: 20200207
  Transmission Date: 20200409
  Serious: Yes (Other)
  Sender: FDA-Public Use
  Company Number: PHHY2019FR122833

PATIENT
  Age: 40 Year
  Sex: Female

DRUGS (12)
  1. DILTIAZEM. [Suspect]
     Active Substance: DILTIAZEM
     Indication: PRODUCT USED FOR UNKNOWN INDICATION
     Dosage: UNK
     Route: 065
  2. CISPLATIN. [Concomitant]
     Active Substance: CISPLATIN
     Indication: ADRENOCORTICAL CARCINOMA
     Dosage: UNK UNK, CYCLIC
     Route: 042
  3. CISPLATIN. [Concomitant]
     Active Substance: CISPLATIN
     Indication: METASTASES TO LIVER
  4. KETOCONAZOLE. [Interacting]
     Active Substance: KETOCONAZOLE
     Indication: PRODUCT USED FOR UNKNOWN INDICATION
     Dosage: UNK
     Route: 065
  5. CISPLATIN. [Concomitant]
     Active Substance: CISPLATIN
     Indication: METASTASES TO LYMPH NODES
  6. ETOPOSIDE. [Interacting]
     Active Substance: ETOPOSIDE
     Dosage: 200 MG/M2, QD
     Route: 042
  7. CISPLATIN. [Concomitant]
     Active Substance: CISPLATIN
     Indication: METASTASES TO BONE
  8. CISPLATIN. [Concomitant]
     Active Substance: CISPLATIN
     Indication: ADRENAL GLAND CANCER
     Dosage: UNK
     Route: 065
  9. ETOPOSIDE. [Interacting]
     Active Substance: ETOPOSIDE
     Indication: ADRENOCORTICAL CARCINOMA
     Dosage: 150 MG/M2, QD (ON DAYS 1, 2 AND 3 OF EACH 3WEEK CYCLE AT CYCLE 1)
     Route: 042
  10. MITOTANE [Interacting]
     Active Substance: MITOTANE
     Dosage: 1.5 G, QD (DURING CYCLE 1/ INITIAL DOSE)
     Route: 065
  11. CISPLATIN. [Concomitant]
     Active Substance: CISPLATIN
     Indication: METASTASES TO LUNG
  12. MITOTANE [Interacting]
     Active Substance: MITOTANE
     Indication: ADRENOCORTICAL CARCINOMA
     Dosage: 1 UNK, QD (FOR CYCLE 2)
     Route: 065

REACTIONS (4)
  - Drug clearance decreased [Unknown]
  - Drug interaction [Unknown]
  - Disease progression [Unknown]
  - Drug clearance increased [Unknown]
